FAERS Safety Report 17722443 (Version 1)
Quarter: 2020Q2

REPORT INFORMATION
  Report Type: Spontaneous
  Country: US (occurrence: US)
  Receive Date: 20200429
  Receipt Date: 20200429
  Transmission Date: 20200714
  Serious: No
  Sender: FDA-Public Use
  Company Number: US-PFIZER INC-2019141756

PATIENT
  Age: 58 Year

DRUGS (4)
  1. CHANTIX [Suspect]
     Active Substance: VARENICLINE TARTRATE
     Indication: DYSPNOEA
     Dosage: 0.5 MG
     Dates: start: 20181120
  2. CHANTIX [Suspect]
     Active Substance: VARENICLINE TARTRATE
     Indication: NICOTINE DEPENDENCE
     Dosage: 1 MG, 2X/DAY
     Route: 048
  3. CHANTIX [Suspect]
     Active Substance: VARENICLINE TARTRATE
     Indication: COUGH
  4. CHANTIX [Suspect]
     Active Substance: VARENICLINE TARTRATE
     Indication: CHRONIC OBSTRUCTIVE PULMONARY DISEASE

REACTIONS (2)
  - Feeling abnormal [Unknown]
  - Amnesia [Unknown]
